FAERS Safety Report 9189463 (Version 1)
Quarter: 2013Q1

REPORT INFORMATION
  Report Type: Spontaneous
  Country: BE (occurrence: BE)
  Receive Date: 20130326
  Receipt Date: 20130326
  Transmission Date: 20140127
  Serious: Yes (Other)
  Sender: FDA-Public Use
  Company Number: PHHY2013BE028553

PATIENT
  Age: 79 Year
  Sex: Female

DRUGS (13)
  1. ACLASTA [Suspect]
     Indication: OSTEOPOROSIS
     Dosage: 5 MG, UNK
     Route: 042
     Dates: start: 200804
  2. ACLASTA [Suspect]
     Dosage: 5 MG, UNK
     Route: 042
  3. ACLASTA [Suspect]
     Dosage: 5 MG, UNK
     Route: 042
  4. ACLASTA [Suspect]
     Dosage: 5 MG, UNK
     Route: 042
  5. ACLASTA [Suspect]
     Dosage: 5 MG, UNK
     Route: 042
     Dates: start: 201204
  6. FOSAVANCE [Suspect]
     Indication: OSTEOPOROSIS
     Dosage: WEEKLY
     Dates: start: 2003, end: 200802
  7. SIMVASTATIN [Concomitant]
  8. XANTHIUM [Concomitant]
  9. TRAMADOL [Concomitant]
  10. SINTROM [Concomitant]
  11. REDOMEX [Concomitant]
  12. SYMBICORT [Concomitant]
  13. MONTELUKAST [Concomitant]

REACTIONS (4)
  - Osteonecrosis of jaw [Not Recovered/Not Resolved]
  - Superinfection [Not Recovered/Not Resolved]
  - Infection [Not Recovered/Not Resolved]
  - Pain [Not Recovered/Not Resolved]
